FAERS Safety Report 8075493-1 (Version None)
Quarter: 2012Q1

REPORT INFORMATION
  Report Type: 
  Country: None (occurrence: None)
  Receive Date: 20120127
  Receipt Date: 20120119
  Transmission Date: 20120608
  Serious: No
  Sender: FDA-Public Use
  Company Number: US-B.I. PHARMACEUTICALS,INC./RIDGEFIELD-2012-BP-01281BP

PATIENT
  Age: 38 Year
  Sex: Female

DRUGS (2)
  1. MICARDIS [Suspect]
  2. LEVOXYL [Concomitant]

REACTIONS (4)
  - COLD SWEAT [None]
  - TACHYCARDIA [None]
  - DYSPNOEA [None]
  - DIZZINESS [None]
